FAERS Safety Report 4812430-4 (Version None)
Quarter: 2005Q4

REPORT INFORMATION
  Report Type: 
  Country: None (occurrence: None)
  Receive Date: 20051028
  Receipt Date: 20050127
  Transmission Date: 20060501
  Serious: Yes (Hospitalization)
  Sender: FDA-Public Use
  Company Number: US-GLAXOSMITHKLINE-A0542683A

PATIENT
  Age: 60 Year
  Sex: Female

DRUGS (5)
  1. ADVAIR DISKUS 100/50 [Suspect]
     Indication: ASTHMA
     Dosage: 1PUFF TWICE PER DAY
     Route: 055
     Dates: start: 20030408
  2. SINGULAIR [Concomitant]
     Indication: ASTHMA
     Dates: start: 20041124
  3. QUININE SULFATE [Concomitant]
     Route: 048
     Dates: start: 20050104
  4. ZOLOFT [Concomitant]
     Indication: DEPRESSION
     Route: 048
  5. ALBUTEROL [Concomitant]
     Indication: ASTHMA
     Dosage: 2PUFF FOUR TIMES PER DAY
     Route: 055
     Dates: start: 20050126

REACTIONS (1)
  - ASTHMA [None]
